FAERS Safety Report 10148887 (Version 1)
Quarter: 2014Q2

REPORT INFORMATION
  Report Type: Spontaneous
  Country: US (occurrence: US)
  Receive Date: 20140502
  Receipt Date: 20140502
  Transmission Date: 20141212
  Serious: No
  Sender: FDA-Public Use
  Company Number: US-BIOGENIDEC-2014BI034703

PATIENT
  Age: 56 Year
  Sex: Female

DRUGS (12)
  1. AVONEX [Suspect]
     Indication: MULTIPLE SCLEROSIS
     Route: 030
     Dates: start: 20030501, end: 20140402
  2. AMPYRA [Concomitant]
     Indication: MULTIPLE SCLEROSIS
     Route: 048
  3. IBUPROFEN [Concomitant]
  4. VITAMIN B 12 [Concomitant]
  5. FISH OIL [Concomitant]
  6. CALCIUM AND VITAMIN D [Concomitant]
  7. TRAMADOL [Concomitant]
  8. VOLTAREN [Concomitant]
  9. IMITREX [Concomitant]
  10. ZANAFLEX [Concomitant]
  11. TECFIDERA [Concomitant]
     Route: 048
     Dates: start: 20140409, end: 20140416
  12. TECFIDERA [Concomitant]
     Route: 048
     Dates: start: 20140417

REACTIONS (5)
  - Multiple sclerosis [Unknown]
  - Hypotonia [Unknown]
  - Central nervous system lesion [Not Recovered/Not Resolved]
  - Balance disorder [Not Recovered/Not Resolved]
  - Fall [Recovered/Resolved]
